FAERS Safety Report 18463754 (Version 3)
Quarter: 2021Q1

REPORT INFORMATION
  Report Type: Spontaneous
  Country: US (occurrence: US)
  Receive Date: 20201104
  Receipt Date: 20210312
  Transmission Date: 20210419
  Serious: Yes (Hospitalization, Other)
  Sender: FDA-Public Use
  Company Number: US-TAKEDA-US202034632

PATIENT
  Sex: Female
  Weight: 89.8 kg

DRUGS (38)
  1. TRAMADOL. [Concomitant]
     Active Substance: TRAMADOL
  2. AZITHROMYCIN ANHYDROUS. [Concomitant]
     Active Substance: AZITHROMYCIN ANHYDROUS
  3. FERROUS SULFATE. [Concomitant]
     Active Substance: FERROUS SULFATE
  4. FUROSEMIDE. [Concomitant]
     Active Substance: FUROSEMIDE
  5. LORAZEPAM. [Concomitant]
     Active Substance: LORAZEPAM
  6. IPRATROPIUM BROMIDE. [Concomitant]
     Active Substance: IPRATROPIUM BROMIDE
  7. HYDRALAZINE [Concomitant]
     Active Substance: HYDRALAZINE HYDROCHLORIDE
  8. ADVAIR HFA [Concomitant]
     Active Substance: FLUTICASONE PROPIONATE\SALMETEROL XINAFOATE
  9. LOSARTAN POTASSIUM. [Concomitant]
     Active Substance: LOSARTAN POTASSIUM
  10. BENZONATATE. [Concomitant]
     Active Substance: BENZONATATE
  11. CUVITRU [Suspect]
     Active Substance: HUMAN IMMUNOGLOBULIN G
     Indication: IMMUNODEFICIENCY COMMON VARIABLE
     Dosage: 25 GRAM, Q2WEEKS
     Route: 058
     Dates: start: 20180224
  12. CLONIDINE. [Concomitant]
     Active Substance: CLONIDINE
  13. OXYGEN. [Concomitant]
     Active Substance: OXYGEN
  14. ASPIRIN [ACETYLSALICYLIC ACID] [Concomitant]
     Active Substance: ASPIRIN
  15. PROAIR [FLUTICASONE PROPIONATE] [Concomitant]
     Active Substance: FLUTICASONE PROPIONATE
  16. DIPHENHYDRAMINE. [Concomitant]
     Active Substance: DIPHENHYDRAMINE
  17. LEXAPRO [Concomitant]
     Active Substance: ESCITALOPRAM OXALATE
  18. ALBUTEROL [SALBUTAMOL] [Concomitant]
     Active Substance: ALBUTEROL
  19. FLUCONAZOLE. [Concomitant]
     Active Substance: FLUCONAZOLE
  20. VITAMIN B12 [Concomitant]
     Active Substance: CYANOCOBALAMIN
  21. VITAMIN D3 [Concomitant]
     Active Substance: CHOLECALCIFEROL
  22. PAROXETINE. [Concomitant]
     Active Substance: PAROXETINE
  23. CELECOXIB. [Concomitant]
     Active Substance: CELECOXIB
  24. HUMALOG [Concomitant]
     Active Substance: INSULIN LISPRO
  25. PANTOPRAZOLE [Concomitant]
     Active Substance: PANTOPRAZOLE
  26. CUVITRU [Suspect]
     Active Substance: HUMAN IMMUNOGLOBULIN G
     Dosage: 250 MILLIGRAM/KILOGRAM, Q2WEEKS
     Route: 058
     Dates: start: 20180224
  27. ACETAMINOPHEN. [Concomitant]
     Active Substance: ACETAMINOPHEN
  28. DALIRESP [Concomitant]
     Active Substance: ROFLUMILAST
  29. EPINEPHRINE. [Concomitant]
     Active Substance: EPINEPHRINE
  30. NITROGLYCERIN. [Concomitant]
     Active Substance: NITROGLYCERIN
  31. POTASSIUM CHLORIDE. [Concomitant]
     Active Substance: POTASSIUM CHLORIDE
  32. METOLAZONE. [Concomitant]
     Active Substance: METOLAZONE
  33. METOPROLOL TARTRATE. [Concomitant]
     Active Substance: METOPROLOL TARTRATE
  34. GABAPENTIN. [Concomitant]
     Active Substance: GABAPENTIN
  35. LORATADINE. [Concomitant]
     Active Substance: LORATADINE
  36. METFORMIN [Concomitant]
     Active Substance: METFORMIN HYDROCHLORIDE
  37. SPIRIVA [Concomitant]
     Active Substance: TIOTROPIUM BROMIDE MONOHYDRATE
  38. MUCINEX [Concomitant]
     Active Substance: GUAIFENESIN

REACTIONS (6)
  - Blood glucose abnormal [Unknown]
  - Erythema [Unknown]
  - Haemorrhage [Unknown]
  - Swelling [Unknown]
  - Injection site extravasation [Unknown]
  - Pneumonia [Unknown]
